FAERS Safety Report 8359136-5 (Version None)
Quarter: 2012Q2

REPORT INFORMATION
  Report Type: 
  Country: None (occurrence: None)
  Receive Date: 20120511
  Receipt Date: 20120427
  Transmission Date: 20120825
  Serious: Yes (Hospitalization, Other)
  Sender: FDA-Public Use
  Company Number: 201204011

PATIENT
  Age: 83 Year
  Sex: Female

DRUGS (1)
  1. XIAFLEX [Suspect]
     Indication: DUPUYTREN'S CONTRACTURE
     Dosage: 1 IN 1 D, INTRALESIONAL
     Route: 026
     Dates: start: 20120228, end: 20120228

REACTIONS (8)
  - INTERSTITIAL LUNG DISEASE [None]
  - OSTEOPOROSIS [None]
  - DEEP VEIN THROMBOSIS [None]
  - INGUINAL MASS [None]
  - DIVERTICULUM [None]
  - MASS [None]
  - KYPHOSIS [None]
  - COLONIC POLYP [None]
